FAERS Safety Report 7384206-8 (Version None)
Quarter: 2011Q1

REPORT INFORMATION
  Report Type: 
  Country: None (occurrence: None)
  Receive Date: 20110322
  Receipt Date: 20110307
  Transmission Date: 20110831
  Serious: Yes (Hospitalization, Other)
  Sender: FDA-Public Use
  Company Number: JPI-P-013350

PATIENT
  Age: 49 Year
  Sex: Female

DRUGS (11)
  1. LEVOTHYROXINE [Concomitant]
  2. XYREM [Suspect]
     Indication: SOMNOLENCE
     Dosage: 4 GM FIRST DOSE/2GM SECOND DOSE),7,9,7.5 GM (3.5,4.5,3.7 GM 2 IN 1 D) ORAL
     Route: 048
     Dates: start: 20101201
  3. XYREM [Suspect]
     Indication: NARCOLEPSY
     Dosage: 4 GM FIRST DOSE/2GM SECOND DOSE),7,9,7.5 GM (3.5,4.5,3.7 GM 2 IN 1 D) ORAL
     Route: 048
     Dates: start: 20101201
  4. XYREM [Suspect]
     Indication: SOMNOLENCE
     Dosage: 4 GM FIRST DOSE/2GM SECOND DOSE),7,9,7.5 GM (3.5,4.5,3.7 GM 2 IN 1 D) ORAL
     Route: 048
     Dates: start: 20110101, end: 20110228
  5. XYREM [Suspect]
     Indication: NARCOLEPSY
     Dosage: 4 GM FIRST DOSE/2GM SECOND DOSE),7,9,7.5 GM (3.5,4.5,3.7 GM 2 IN 1 D) ORAL
     Route: 048
     Dates: start: 20110101, end: 20110228
  6. XYREM [Suspect]
     Indication: SOMNOLENCE
     Dosage: 4 GM FIRST DOSE/2GM SECOND DOSE),7,9,7.5 GM (3.5,4.5,3.7 GM 2 IN 1 D) ORAL
     Route: 048
     Dates: start: 20110306
  7. XYREM [Suspect]
     Indication: NARCOLEPSY
     Dosage: 4 GM FIRST DOSE/2GM SECOND DOSE),7,9,7.5 GM (3.5,4.5,3.7 GM 2 IN 1 D) ORAL
     Route: 048
     Dates: start: 20110306
  8. XYREM [Suspect]
     Indication: SOMNOLENCE
     Dosage: 4 GM FIRST DOSE/2GM SECOND DOSE),7,9,7.5 GM (3.5,4.5,3.7 GM 2 IN 1 D) ORAL
     Route: 048
     Dates: start: 20110101, end: 20110101
  9. XYREM [Suspect]
     Indication: NARCOLEPSY
     Dosage: 4 GM FIRST DOSE/2GM SECOND DOSE),7,9,7.5 GM (3.5,4.5,3.7 GM 2 IN 1 D) ORAL
     Route: 048
     Dates: start: 20110101, end: 20110101
  10. XYREM [Suspect]
     Indication: SOMNOLENCE
     Dosage: 4 GM FIRST DOSE/2GM SECOND DOSE),7,9,7.5 GM (3.5,4.5,3.7 GM 2 IN 1 D) ORAL
     Route: 048
     Dates: start: 20110101, end: 20110101
  11. XYREM [Suspect]
     Indication: NARCOLEPSY
     Dosage: 4 GM FIRST DOSE/2GM SECOND DOSE),7,9,7.5 GM (3.5,4.5,3.7 GM 2 IN 1 D) ORAL
     Route: 048
     Dates: start: 20110101, end: 20110101

REACTIONS (9)
  - PARAESTHESIA ORAL [None]
  - FLUID RETENTION [None]
  - INCISIONAL HERNIA [None]
  - WEIGHT INCREASED [None]
  - HYPOAESTHESIA [None]
  - CONDITION AGGRAVATED [None]
  - MIGRAINE [None]
  - BLOOD PRESSURE INCREASED [None]
  - NAUSEA [None]
